FAERS Safety Report 9557162 (Version 1)
Quarter: 2013Q3

REPORT INFORMATION
  Report Type: Spontaneous
  Country: US (occurrence: None)
  Receive Date: 20130724
  Receipt Date: 20130724
  Transmission Date: 20140515
  Serious: Yes (Other)
  Sender: FDA-Public Use
  Company Number: PHEH2013US007926

PATIENT
  Age: 46 Year
  Sex: Female
  Weight: 51.7 kg

DRUGS (9)
  1. GILENYA [Suspect]
     Indication: MULTIPLE SCLEROSIS
     Route: 048
     Dates: start: 20130404
  2. GABAPENTIN [Concomitant]
  3. XANAX (ALPRAZOLAM) [Concomitant]
  4. CALCIUM CARBONATE [Concomitant]
  5. WELLBUTRIN (BUPROPION HYDROCHLORIDE) [Concomitant]
  6. KLONOPIN (CLONAZEPAM) (TABLETS) [Concomitant]
  7. VITA D (COLECALCIFEROL) [Concomitant]
  8. TYLENOL (PARACETAMOL) [Concomitant]
  9. YAZ (DROSPIRENONE, ETHINYLESRADIOL BETADEX CLATHRATE) [Concomitant]

REACTIONS (3)
  - Throat irritation [None]
  - Paraesthesia [None]
  - Headache [None]
